FAERS Safety Report 11558708 (Version 1)
Quarter: 2015Q3

REPORT INFORMATION
  Report Type: Spontaneous
  Country: US (occurrence: None)
  Receive Date: 20150925
  Receipt Date: 20150925
  Transmission Date: 20151125
  Serious: Yes (Life-Threatening, Hospitalization, Disabling)
  Sender: FDA-Public Use
  Company Number: None

PATIENT
  Age: 50 Year
  Sex: Male
  Weight: 80.74 kg

DRUGS (3)
  1. MELATONIN [Concomitant]
     Active Substance: MELATONIN
  2. LYRICA [Suspect]
     Active Substance: PREGABALIN
     Route: 048
  3. VITAMIN D [Concomitant]
     Active Substance: CHOLECALCIFEROL

REACTIONS (6)
  - Dyspnoea [None]
  - Disorientation [None]
  - Balance disorder [None]
  - Confusional state [None]
  - Fall [None]
  - Road traffic accident [None]
